FAERS Safety Report 18576125 (Version 1)
Quarter: 2020Q4

REPORT INFORMATION
  Report Type: Spontaneous
  Country: GB (occurrence: GB)
  Receive Date: 20201203
  Receipt Date: 20201203
  Transmission Date: 20210114
  Serious: Yes (Other)
  Sender: FDA-Public Use
  Company Number: GB-FRESENIUS KABI-FK202012677

PATIENT
  Age: 40 Year
  Sex: Female

DRUGS (8)
  1. SODIUM CHLORIDE (MANUFACTURER UNKNOWN) [Suspect]
     Active Substance: SODIUM CHLORIDE
     Indication: HYSTEROSCOPY
     Dosage: UNK
     Route: 015
  2. FENTANYL. [Concomitant]
     Active Substance: FENTANYL
     Indication: INDUCTION OF ANAESTHESIA
  3. CLAVULANATE POTASSIUM/AMOXICILLIN TRIHYDRATE [Concomitant]
     Active Substance: AMOXICILLIN\CLAVULANATE POTASSIUM
  4. ONDANSETRON [Concomitant]
     Active Substance: ONDANSETRON
  5. LACTATED RINGERS SOLUTION [Suspect]
     Active Substance: CALCIUM CHLORIDE\POTASSIUM CHLORIDE\SODIUM CHLORIDE\SODIUM LACTATE
     Indication: PRODUCT USED FOR UNKNOWN INDICATION
     Dosage: UNK
     Route: 042
  6. MIDAZOLAM. [Concomitant]
     Active Substance: MIDAZOLAM
     Indication: INDUCTION OF ANAESTHESIA
  7. PROPOFOL. [Concomitant]
     Active Substance: PROPOFOL
     Indication: INDUCTION OF ANAESTHESIA
  8. SEVOFLURANE. [Concomitant]
     Active Substance: SEVOFLURANE
     Indication: MAINTENANCE OF ANAESTHESIA

REACTIONS (4)
  - Acute pulmonary oedema [Recovered/Resolved]
  - Fluid overload [Recovered/Resolved]
  - Metabolic acidosis [Recovered/Resolved]
  - Incorrect route of product administration [Unknown]
